FAERS Safety Report 4568689-4 (Version None)
Quarter: 2005Q1

REPORT INFORMATION
  Report Type: 
  Country: None (occurrence: None)
  Receive Date: 20050118
  Receipt Date: 20040713
  Transmission Date: 20050727
  Serious: Yes (Other)
  Sender: FDA-Public Use
  Company Number: HQWYE143115JUL04

PATIENT
  Age: 53 Year
  Sex: Female

DRUGS (7)
  1. PREMPRO [Suspect]
     Indication: HORMONE REPLACEMENT THERAPY
  2. ACTIVELLA [Suspect]
  3. LOESTRIN (ETHINYLESTRADIOL/NORETHISTERONE ACETATE,  ) [Suspect]
  4. NORDETTE-28 [Suspect]
  5. PREMARIN [Suspect]
  6. PREMPHASE 14/14 [Suspect]
  7. PROVERA [Suspect]

REACTIONS (1)
  - BREAST CANCER [None]
